FAERS Safety Report 5463058-7 (Version None)
Quarter: 2007Q3

REPORT INFORMATION
  Report Type: 
  Country: None (occurrence: None)
  Receive Date: 20070920
  Receipt Date: 20070912
  Transmission Date: 20080115
  Serious: Yes (Death, Hospitalization)
  Sender: FDA-Public Use
  Company Number: FR-GENENTECH-243661

PATIENT
  Sex: Male
  Weight: 77 kg

DRUGS (6)
  1. RITUXAN [Suspect]
     Indication: CHONDRITIS
     Dosage: 375 MG/M2, 1/WEEK
     Route: 042
     Dates: start: 20061005
  2. CORTICOSTEROID (UNK INGREDIENTS) [Concomitant]
     Indication: CHONDRITIS
     Dosage: 20 MG, QD
  3. CORTANCYL [Concomitant]
     Indication: CHONDRITIS
     Dosage: 20 MG, UNK
     Route: 048
     Dates: start: 20010101
  4. COLCHICINE [Concomitant]
     Indication: CHONDRITIS
     Dosage: 1 MG, UNK
     Route: 048
     Dates: start: 20010101
  5. COUMADIN [Concomitant]
     Indication: PHLEBITIS
     Dosage: 2.5 MG, UNK
     Dates: start: 20020101
  6. OROCAL [Concomitant]
     Indication: OSTEOPOROSIS PROPHYLAXIS
     Dosage: 1 TABLET, QD
     Route: 048

REACTIONS (2)
  - INFLUENZA [None]
  - SEPTIC SHOCK [None]
